FAERS Safety Report 11281877 (Version 2)
Quarter: 2015Q3

REPORT INFORMATION
  Report Type: Spontaneous
  Country: US (occurrence: US)
  Receive Date: 20150717
  Receipt Date: 20150901
  Transmission Date: 20151125
  Serious: Yes (Other)
  Sender: FDA-Public Use
  Company Number: US-ASTRAZENECA-2015SE68017

PATIENT
  Age: 22709 Day
  Sex: Female
  Weight: 145.2 kg

DRUGS (4)
  1. SYMBICORT [Suspect]
     Active Substance: BUDESONIDE\FORMOTEROL FUMARATE DIHYDRATE
     Indication: WHEEZING
     Dosage: 80/4.5 UG, TWO PUFFS TWO TIMES DAILY
     Route: 055
     Dates: start: 20150703
  2. PLAVIX [Concomitant]
     Active Substance: CLOPIDOGREL BISULFATE
     Indication: STENT PLACEMENT
     Route: 048
     Dates: start: 2001
  3. SYMBICORT [Suspect]
     Active Substance: BUDESONIDE\FORMOTEROL FUMARATE DIHYDRATE
     Indication: WHEEZING
     Dosage: 80/4.5 UG, TWO PUFFS TWO TIMES DAILY
     Route: 055
     Dates: start: 20150501
  4. TONS OF MEDICATIONS [Concomitant]

REACTIONS (10)
  - Mediastinal effusion [Unknown]
  - Feeling abnormal [Unknown]
  - Dysphonia [Unknown]
  - Product quality issue [Unknown]
  - Drug ineffective for unapproved indication [Unknown]
  - Malaise [Unknown]
  - Hypotension [Unknown]
  - Product use issue [Unknown]
  - Cough [Unknown]
  - Chest discomfort [Unknown]

NARRATIVE: CASE EVENT DATE: 20150501
